FAERS Safety Report 8552490-0 (Version None)
Quarter: 2012Q3

REPORT INFORMATION
  Report Type: 
  Country: None (occurrence: None)
  Receive Date: 20120719
  Receipt Date: 20120709
  Transmission Date: 20120928
  Serious: Yes (Other)
  Sender: FDA-Public Use
  Company Number: DSA_58510_2012

PATIENT
  Sex: Male

DRUGS (2)
  1. LEVOFLOXACIN [Concomitant]
  2. MACUGEN [Suspect]
     Dosage: 0.3 MG/TIME, INTRAOCULAR
     Route: 031
     Dates: start: 20100510

REACTIONS (1)
  - CEREBRAL INFARCTION [None]
